FAERS Safety Report 22064953 (Version 3)
Quarter: 2023Q1

REPORT INFORMATION
  Report Type: Spontaneous
  Country: US (occurrence: US)
  Receive Date: 20230306
  Receipt Date: 20230329
  Transmission Date: 20230417
  Serious: No
  Sender: FDA-Public Use
  Company Number: US-BRISTOL-MYERS SQUIBB COMPANY-2023-031864

PATIENT
  Age: 77 Year
  Sex: Female
  Weight: 51.1 kg

DRUGS (1)
  1. REVLIMID [Suspect]
     Active Substance: LENALIDOMIDE
     Indication: Plasma cell myeloma
     Dosage: DAILY ON DAYS 1-21 OF 28 DAY CYCLE
     Route: 048
     Dates: start: 20230223

REACTIONS (10)
  - Constipation [Recovered/Resolved]
  - Headache [Not Recovered/Not Resolved]
  - Anxiety [Recovering/Resolving]
  - Swelling [Recovering/Resolving]
  - Blister [Recovering/Resolving]
  - Fatigue [Recovering/Resolving]
  - Stress [Recovering/Resolving]
  - Bone pain [Unknown]
  - Muscle spasms [Unknown]
  - Lip pain [Unknown]
